FAERS Safety Report 16779687 (Version 2)
Quarter: 2019Q3

REPORT INFORMATION
  Report Type: Spontaneous
  Country: JP (occurrence: JP)
  Receive Date: 20190906
  Receipt Date: 20190923
  Transmission Date: 20191005
  Serious: Yes (Hospitalization, Other)
  Sender: FDA-Public Use
  Company Number: JP-SAKK-2019SA247270AA

PATIENT
  Age: 53 Year
  Sex: Female

DRUGS (3)
  1. DOCETAXEL. [Suspect]
     Active Substance: DOCETAXEL
     Indication: INVASIVE DUCTAL BREAST CARCINOMA
     Dosage: UNK
     Route: 041
     Dates: start: 201811, end: 201901
  2. TRASTUZUMAB. [Concomitant]
     Active Substance: TRASTUZUMAB
     Indication: INVASIVE DUCTAL BREAST CARCINOMA
     Dosage: UNK
     Route: 065
     Dates: start: 201811, end: 201901
  3. PERTUZUMAB. [Concomitant]
     Active Substance: PERTUZUMAB
     Indication: INVASIVE DUCTAL BREAST CARCINOMA
     Dosage: UNK
     Route: 065
     Dates: start: 201811, end: 201901

REACTIONS (3)
  - Toxic skin eruption [Unknown]
  - Neutrophil count decreased [Unknown]
  - C-reactive protein increased [Unknown]
